FAERS Safety Report 5068834-0 (Version None)
Quarter: 2006Q3

REPORT INFORMATION
  Report Type: 
  Country: None (occurrence: None)
  Receive Date: 20060802
  Receipt Date: 20060426
  Transmission Date: 20061208
  Serious: No
  Sender: FDA-Public Use
  Company Number: US-BRISTOL-MYERS SQUIBB COMPANY-13357298

PATIENT
  Age: 81 Year
  Sex: Female
  Weight: 91 kg

DRUGS (7)
  1. COUMADIN [Suspect]
     Indication: ARRHYTHMIA
     Dosage: STARTED 3 WEEKS AGO
     Route: 048
     Dates: start: 20060101
  2. POTASSIUM [Concomitant]
     Dates: start: 19980101
  3. LIPITOR [Concomitant]
     Dates: start: 19980101
  4. NITROGLYCERIN [Concomitant]
     Dates: start: 19980101
  5. ALLOPURINOL [Concomitant]
     Dates: start: 19980101
  6. FUROSEMIDE [Concomitant]
     Dates: start: 19980101
  7. LEVOXYL [Concomitant]
     Dates: start: 19980101

REACTIONS (3)
  - FATIGUE [None]
  - PAIN [None]
  - PALLOR [None]
